FAERS Safety Report 11641394 (Version 2)
Quarter: 2016Q1

REPORT INFORMATION
  Report Type: Report from Study
  Country: FR (occurrence: FR)
  Receive Date: 20151019
  Receipt Date: 20160322
  Transmission Date: 20160525
  Serious: Yes (Death, Hospitalization, Other)
  Sender: FDA-Public Use
  Company Number: PHHY2015FR102783

PATIENT
  Age: 61 Year
  Sex: Male

DRUGS (27)
  1. SOLUPRED [Concomitant]
     Active Substance: PREDNISOLONE
     Indication: CHEST PAIN
  2. DAFALGAN [Concomitant]
     Active Substance: ACETAMINOPHEN
     Indication: CHEST PAIN
  3. KETAMINE [Concomitant]
     Active Substance: KETAMINE
     Indication: NEURALGIA
     Route: 065
  4. LDK378 [Suspect]
     Active Substance: CERITINIB
     Dosage: 600 MG, QD
     Route: 048
     Dates: start: 20150820, end: 20151221
  5. INEXIUM//ESOMEPRAZOLE MAGNESIUM [Concomitant]
     Active Substance: ESOMEPRAZOLE MAGNESIUM
     Indication: PRODUCT USED FOR UNKNOWN INDICATION
     Dosage: 40 MG, QD
     Route: 065
  6. FRAGMINE [Concomitant]
     Active Substance: DALTEPARIN SODIUM
     Indication: CHEST PAIN
  7. SKENAN [Concomitant]
     Active Substance: MORPHINE SULFATE
     Indication: NEURALGIA
     Dosage: 100 MG, BID
     Route: 065
  8. DAFALGAN [Concomitant]
     Active Substance: ACETAMINOPHEN
     Indication: NEURALGIA
     Dosage: 3 G, QD
     Route: 065
  9. XANAX [Concomitant]
     Active Substance: ALPRAZOLAM
     Indication: PRODUCT USED FOR UNKNOWN INDICATION
     Route: 065
  10. KETAMINE [Concomitant]
     Active Substance: KETAMINE
     Indication: CHEST PAIN
  11. KETOPROFEN. [Concomitant]
     Active Substance: KETOPROFEN
     Indication: NEURALGIA
     Route: 065
  12. SOLUPRED [Concomitant]
     Active Substance: PREDNISOLONE
     Indication: NEURALGIA
     Dosage: 60 MG, QD
     Route: 065
  13. ACUPAN [Concomitant]
     Active Substance: NEFOPAM HYDROCHLORIDE
     Indication: CHEST PAIN
  14. QUTENZA [Concomitant]
     Active Substance: CAPSAICIN
     Indication: NEURALGIA
     Route: 065
  15. LDK378 [Suspect]
     Active Substance: CERITINIB
     Indication: LUNG ADENOCARCINOMA
     Dosage: 750 MG, QD
     Route: 048
     Dates: start: 20150720
  16. SKENAN [Concomitant]
     Active Substance: MORPHINE SULFATE
     Indication: CHEST PAIN
  17. OXYNORM [Concomitant]
     Active Substance: OXYCODONE HYDROCHLORIDE
     Indication: NEURALGIA
     Dosage: 200 MG, EVERY 48 HOURS
     Route: 058
  18. OXYNORM [Concomitant]
     Active Substance: OXYCODONE HYDROCHLORIDE
     Indication: CHEST PAIN
  19. KETOPROFEN. [Concomitant]
     Active Substance: KETOPROFEN
     Indication: CHEST PAIN
  20. PREDNISOLONE. [Concomitant]
     Active Substance: PREDNISOLONE
     Indication: NEURALGIA
     Dosage: 100 MG, QD
     Route: 065
  21. FRAGMINE [Concomitant]
     Active Substance: DALTEPARIN SODIUM
     Indication: NEURALGIA
     Route: 065
  22. NEURONTIN [Concomitant]
     Active Substance: GABAPENTIN
     Indication: PRODUCT USED FOR UNKNOWN INDICATION
     Route: 065
  23. PREDNISOLONE. [Concomitant]
     Active Substance: PREDNISOLONE
     Indication: CHEST PAIN
  24. CALCIUM [Concomitant]
     Active Substance: CALCIUM
     Indication: PRODUCT USED FOR UNKNOWN INDICATION
     Route: 065
  25. ACUPAN [Concomitant]
     Active Substance: NEFOPAM HYDROCHLORIDE
     Indication: NEURALGIA
     Route: 065
  26. QUTENZA [Concomitant]
     Active Substance: CAPSAICIN
     Indication: CHEST PAIN
  27. TEGRETOL [Concomitant]
     Active Substance: CARBAMAZEPINE
     Indication: NEURALGIA
     Route: 065

REACTIONS (23)
  - Malignant neoplasm progression [Fatal]
  - Confusional state [Not Recovered/Not Resolved]
  - Pain in extremity [Recovering/Resolving]
  - Hypoaesthesia [Fatal]
  - Insomnia [Unknown]
  - Blood creatinine increased [Not Recovered/Not Resolved]
  - General physical health deterioration [Fatal]
  - Bladder dilatation [Fatal]
  - Drug ineffective [Unknown]
  - Lung adenocarcinoma [Fatal]
  - Infection [Unknown]
  - Anxiety [Unknown]
  - Muscle spasms [Recovering/Resolving]
  - Nervous system disorder [Recovering/Resolving]
  - Fatigue [Not Recovered/Not Resolved]
  - Depression [Unknown]
  - Pain [Unknown]
  - Gait disturbance [Recovering/Resolving]
  - Paresis [Fatal]
  - Creatinine renal clearance decreased [Not Recovered/Not Resolved]
  - Micturition disorder [Fatal]
  - Dysstasia [Recovering/Resolving]
  - Activities of daily living impaired [Recovering/Resolving]

NARRATIVE: CASE EVENT DATE: 201507
